FAERS Safety Report 5849373-3 (Version None)
Quarter: 2008Q3

REPORT INFORMATION
  Report Type: 
  Country: None (occurrence: None)
  Receive Date: 20080815
  Receipt Date: 20080807
  Transmission Date: 20090109
  Serious: Yes (Life-Threatening)
  Sender: FDA-Public Use
  Company Number: GXKR2008GB07409

PATIENT
  Age: 74 Year
  Sex: Male

DRUGS (4)
  1. FLUOXETINE [Suspect]
     Indication: DEPRESSION
  2. TEMAZEPAM [Suspect]
     Dosage: 10 MG
     Dates: start: 20020424
  3. REMERON [Suspect]
     Indication: MANIA
     Dosage: 15 MG
     Dates: start: 20020417, end: 20020424
  4. DEPAKOTE [Suspect]
     Dosage: 250 MG
     Dates: start: 20080424

REACTIONS (3)
  - ELEVATED MOOD [None]
  - SEDATION [None]
  - SUICIDE ATTEMPT [None]
